FAERS Safety Report 24256836 (Version 2)
Quarter: 2024Q3

REPORT INFORMATION
  Report Type: Spontaneous
  Country: JP (occurrence: JP)
  Receive Date: 20240828
  Receipt Date: 20240927
  Transmission Date: 20241017
  Serious: No
  Sender: JOHNSON AND JOHNSON
  Company Number: JP-JNJFOC-20240821618

PATIENT
  Age: 86 Year
  Sex: Female
  Weight: 42.3 kg

DRUGS (1)
  1. SIMPONI [Suspect]
     Active Substance: GOLIMUMAB
     Indication: Rheumatoid arthritis
     Dosage: STRENGTH: 50.00 MG / 0.50 ML
     Route: 058
     Dates: start: 202403, end: 20240805

REACTIONS (6)
  - Device deployment issue [Unknown]
  - Injury associated with device [Unknown]
  - Device infusion issue [Unknown]
  - Underdose [Unknown]
  - Needle issue [Unknown]
  - Device defective [Unknown]

NARRATIVE: CASE EVENT DATE: 20240805
